FAERS Safety Report 18724094 (Version 3)
Quarter: 2021Q2

REPORT INFORMATION
  Report Type: Report from Study
  Country: GB (occurrence: GB)
  Receive Date: 20210111
  Receipt Date: 20210513
  Transmission Date: 20210717
  Serious: Yes (Other)
  Sender: FDA-Public Use
  Company Number: NVSC2021GB004209

PATIENT
  Sex: Female

DRUGS (2)
  1. OMNITROPE [Suspect]
     Active Substance: SOMATROPIN
     Indication: SMALL FOR DATES BABY
     Dosage: 0.7 MG, QD
     Route: 058
     Dates: start: 20201202
  2. OMNITROPE [Suspect]
     Active Substance: SOMATROPIN
     Dosage: 0.7 MG, QD (STRENGTH: 15 MG)
     Route: 058

REACTIONS (3)
  - Haemorrhage [Unknown]
  - Stress [Unknown]
  - Product dose omission issue [Unknown]
